FAERS Safety Report 5234184-2 (Version None)
Quarter: 2007Q1

REPORT INFORMATION
  Report Type: 
  Country: None (occurrence: None)
  Receive Date: 20070209
  Receipt Date: 20070126
  Transmission Date: 20070707
  Serious: Yes (Hospitalization)
  Sender: FDA-Public Use
  Company Number: US-JNJFOC-20060600733

PATIENT
  Sex: Female
  Weight: 55.79 kg

DRUGS (8)
  1. FLEXERIL [Suspect]
     Indication: BACK PAIN
     Route: 048
  2. FLEXERIL [Suspect]
     Indication: MUSCLE SPASMS
     Route: 048
  3. MOTRIN [Concomitant]
     Indication: BACK PAIN
     Dosage: APPROXIMATELY 4 DOSES IN 20-24 HOURS
  4. OXYCONTIN [Concomitant]
     Indication: BACK PAIN
     Dosage: APPROXIMATELY 4 DOSES IN 20-24 HOURS
  5. MULTI-VITAMIN [Concomitant]
  6. GLUCOSAMINE CHRONDROITIN [Concomitant]
  7. CALCIUM [Concomitant]
  8. BLACK COHOSH [Concomitant]

REACTIONS (5)
  - BONE MARROW FAILURE [None]
  - CEREBROVASCULAR ACCIDENT [None]
  - HEPATITIS [None]
  - HEPATOSPLENOMEGALY [None]
  - SICKLE CELL ANAEMIA WITH CRISIS [None]
